FAERS Safety Report 7069816-X (Version None)
Quarter: 2010Q4

REPORT INFORMATION
  Report Type: 
  Country: None (occurrence: None)
  Receive Date: 20101028
  Receipt Date: 20100524
  Transmission Date: 20110411
  Serious: No
  Sender: FDA-Public Use
  Company Number: US-WYE-H15440310

PATIENT
  Sex: Female
  Weight: 72.64 kg

DRUGS (6)
  1. EFFEXOR [Suspect]
     Indication: DEPRESSION
     Dates: start: 20100403, end: 20100101
  2. EFFEXOR [Suspect]
     Indication: MOOD SWINGS
  3. PREVACID [Concomitant]
  4. EFFEXOR XR [Suspect]
     Dates: start: 20100101
  5. NORVASC [Concomitant]
  6. HYDROCHLOROTHIAZIDE [Concomitant]

REACTIONS (2)
  - INSOMNIA [None]
  - SOMNOLENCE [None]
